FAERS Safety Report 14814829 (Version 1)
Quarter: 2018Q2

REPORT INFORMATION
  Report Type: Spontaneous
  Country: ZA (occurrence: ZA)
  Receive Date: 20180426
  Receipt Date: 20180426
  Transmission Date: 20180711
  Serious: Yes (Other)
  Sender: FDA-Public Use
  Company Number: ZA-DRREDDYS-SAF/SAF/18/0097984

PATIENT
  Age: 82 Year
  Sex: Male

DRUGS (3)
  1. OMEZ 20 [Suspect]
     Active Substance: OMEPRAZOLE
     Indication: ULCER
     Route: 048
  2. PURICOS [Suspect]
     Active Substance: ALLOPURINOL
     Indication: GOUT
     Route: 048
  3. VUSOR [Suspect]
     Active Substance: ROSUVASTATIN CALCIUM
     Indication: BLOOD CHOLESTEROL
     Route: 048

REACTIONS (1)
  - Neck surgery [Unknown]

NARRATIVE: CASE EVENT DATE: 20180410
